FAERS Safety Report 17907174 (Version 1)
Quarter: 2020Q2

REPORT INFORMATION
  Report Type: Spontaneous
  Country: US (occurrence: US)
  Receive Date: 20200617
  Receipt Date: 20200617
  Transmission Date: 20200714
  Serious: No
  Sender: FDA-Public Use
  Company Number: None

PATIENT
  Age: 72 Year
  Sex: Female
  Weight: 54 kg

DRUGS (1)
  1. DOXYCYCLINE HYCLATE. [Suspect]
     Active Substance: DOXYCYCLINE HYCLATE
     Indication: ARTHROPOD BITE
     Dosage: ?          QUANTITY:20 CAPSULE(S);?
     Route: 048
     Dates: start: 20200601, end: 20200611

REACTIONS (6)
  - Dyspnoea [None]
  - Asthenia [None]
  - Dizziness [None]
  - Nausea [None]
  - Headache [None]
  - Tremor [None]

NARRATIVE: CASE EVENT DATE: 20200601
